FAERS Safety Report 7720718-2 (Version None)
Quarter: 2011Q3

REPORT INFORMATION
  Report Type: 
  Country: None (occurrence: None)
  Receive Date: 20110825
  Receipt Date: 20110606
  Transmission Date: 20111222
  Serious: Yes (Other)
  Sender: FDA-Public Use
  Company Number: ACO_24575_2011

PATIENT
  Age: 52 Year
  Sex: Female

DRUGS (10)
  1. LISINOPRIL [Concomitant]
  2. VALIUM [Concomitant]
  3. WELLBUTRIN [Concomitant]
  4. LORATADINE [Concomitant]
  5. SEREVENT [Concomitant]
  6. DETROL [Concomitant]
  7. ELAVIL [Concomitant]
  8. AMPYRA [Suspect]
     Indication: PRODUCT USED FOR UNKNOWN INDICATION
     Dosage: 10 MG, BID, ORAL
     Route: 048
     Dates: start: 20110301, end: 20110301
  9. AVONEX [Concomitant]
  10. ASPIRIN [Concomitant]

REACTIONS (6)
  - WRONG TECHNIQUE IN DRUG USAGE PROCESS [None]
  - THERAPEUTIC RESPONSE UNEXPECTED [None]
  - WEIGHT DECREASED [None]
  - DYSPHAGIA [None]
  - CONVULSION [None]
  - CONFUSIONAL STATE [None]
